FAERS Safety Report 6628843-4 (Version None)
Quarter: 2010Q1

REPORT INFORMATION
  Report Type: 
  Country: None (occurrence: None)
  Receive Date: 20100311
  Receipt Date: 20100308
  Transmission Date: 20100710
  Serious: Yes (Hospitalization)
  Sender: FDA-Public Use
  Company Number: FR-ROXANE LABORATORIES, INC.-2010-RO-00242RO

PATIENT
  Age: 28 Year
  Sex: Female

DRUGS (4)
  1. AZATHIOPRINE [Suspect]
     Indication: CROHN'S DISEASE
     Dates: start: 20040901, end: 20061201
  2. AZATHIOPRINE [Suspect]
     Dates: start: 20071201, end: 20080201
  3. BUDESONIDE [Concomitant]
     Indication: CROHN'S DISEASE
     Dosage: 6 MG
  4. ACYCLOVIR [Concomitant]
     Indication: ENCEPHALITIS HERPES
     Route: 042

REACTIONS (1)
  - ENCEPHALITIS HERPES [None]
